FAERS Safety Report 5280018-X (Version None)
Quarter: 2007Q1

REPORT INFORMATION
  Report Type: 
  Country: None (occurrence: None)
  Receive Date: 20070329
  Receipt Date: 20070323
  Transmission Date: 20070707
  Serious: Yes (Other)
  Sender: FDA-Public Use
  Company Number: JP-JNJFOC-20070305622

PATIENT
  Sex: Male

DRUGS (7)
  1. RISPERDAL [Suspect]
     Indication: DRUG USE FOR UNKNOWN INDICATION
  2. HALCION [Concomitant]
     Route: 048
  3. AKINETON [Concomitant]
     Route: 048
  4. LEVOMEPROMAZINE MALEATE [Concomitant]
  5. CHLORPROMAZINE HYDROCHLORIDE [Concomitant]
  6. PROMETHAZINE HCL [Concomitant]
  7. NITRAZEPAM [Concomitant]

REACTIONS (1)
  - MULTIPLE DRUG OVERDOSE [None]
